FAERS Safety Report 20069027 (Version 6)
Quarter: 2023Q1

REPORT INFORMATION
  Report Type: Report from Study
  Country: DE (occurrence: DE)
  Receive Date: 20211115
  Receipt Date: 20230131
  Transmission Date: 20230418
  Serious: Yes (Hospitalization, Other)
  Sender: FDA-Public Use
  Company Number: DE-TAKEDA-DE202024281

PATIENT
  Age: 51 Year
  Sex: Male
  Weight: 180 kg

DRUGS (10)
  1. ANTI-INHIBITOR COAGULANT COMPLEX [Suspect]
     Active Substance: ANTI-INHIBITOR COAGULANT COMPLEX
     Indication: Factor VIII deficiency
     Dosage: 6000 INTERNATIONAL UNIT, 3/WEEK
     Route: 042
     Dates: start: 20150810
  2. ANTI-INHIBITOR COAGULANT COMPLEX [Suspect]
     Active Substance: ANTI-INHIBITOR COAGULANT COMPLEX
     Dosage: 6000 INTERNATIONAL UNIT, 3/WEEK
     Route: 042
     Dates: start: 20150824
  3. ANTI-INHIBITOR COAGULANT COMPLEX [Suspect]
     Active Substance: ANTI-INHIBITOR COAGULANT COMPLEX
     Dosage: 6000 INTERNATIONAL UNIT, 3/WEEK
     Route: 042
     Dates: start: 20150824, end: 20210305
  4. ANTI-INHIBITOR COAGULANT COMPLEX [Suspect]
     Active Substance: ANTI-INHIBITOR COAGULANT COMPLEX
     Dosage: 6000 INTERNATIONAL UNIT, 3/WEEK
     Route: 042
     Dates: start: 20150824
  5. ANTI-INHIBITOR COAGULANT COMPLEX [Suspect]
     Active Substance: ANTI-INHIBITOR COAGULANT COMPLEX
     Dosage: 6000 INTERNATIONAL UNIT, 2X A WEEK
     Route: 042
     Dates: start: 20200724
  6. ANTI-INHIBITOR COAGULANT COMPLEX [Suspect]
     Active Substance: ANTI-INHIBITOR COAGULANT COMPLEX
     Dosage: 6000 INTERNATIONAL UNIT
     Route: 042
     Dates: start: 20210111
  7. ANTI-INHIBITOR COAGULANT COMPLEX [Suspect]
     Active Substance: ANTI-INHIBITOR COAGULANT COMPLEX
     Dosage: 6000 INTERNATIONAL UNIT, 3/WEEK
     Route: 042
     Dates: start: 20211111
  8. RAMIPRIL [Concomitant]
     Active Substance: RAMIPRIL
     Indication: Hypertension
     Dosage: UNK
     Route: 048
  9. LERCANIDIPINE [Concomitant]
     Active Substance: LERCANIDIPINE
     Indication: Hypertension
     Dosage: UNK UNK, QD
     Route: 048
  10. GLECAPREVIR\PIBRENTASVIR [Concomitant]
     Active Substance: GLECAPREVIR\PIBRENTASVIR
     Indication: Hepatitis C
     Dosage: 100 MILLIGRAM
     Route: 048

REACTIONS (8)
  - Procedural haemorrhage [Not Recovered/Not Resolved]
  - Haematemesis [Recovered/Resolved]
  - Gastrointestinal haemorrhage [Recovered/Resolved]
  - Cardiac aneurysm [Not Recovered/Not Resolved]
  - Erosive oesophagitis [Unknown]
  - Blood disorder [Recovered/Resolved]
  - Arthralgia [Unknown]
  - Abdominal distension [Unknown]

NARRATIVE: CASE EVENT DATE: 20210114
